FAERS Safety Report 6469736-5 (Version None)
Quarter: 2009Q4

REPORT INFORMATION
  Report Type: 
  Country: None (occurrence: None)
  Receive Date: 20091203
  Receipt Date: 20071108
  Transmission Date: 20100525
  Serious: Yes (Hospitalization)
  Sender: FDA-Public Use
  Company Number: US-ELI_LILLY_AND_COMPANY-US200711002490

PATIENT
  Sex: Female
  Weight: 103.99 kg

DRUGS (11)
  1. BYETTA [Suspect]
     Indication: TYPE 2 DIABETES MELLITUS
     Dosage: 5 UG, 2/D
     Route: 058
     Dates: start: 20060101, end: 20060101
  2. BYETTA [Suspect]
     Dosage: 10 UG, 2/D
     Route: 058
     Dates: start: 20060101
  3. LANTUS [Concomitant]
     Dosage: 35 U, EACH EVENING
     Route: 058
     Dates: end: 20071107
  4. LANTUS [Concomitant]
     Dosage: 25 U, EACH EVENING
     Route: 058
     Dates: start: 20071108
  5. GLYBURIDE AND METFORMIN HCL [Concomitant]
     Dosage: UNK, 2/D
     Route: 048
  6. HYDROCORTISONE [Concomitant]
  7. LISINOPRIL [Concomitant]
     Indication: HYPERTENSION
  8. HYDROCHLOROTHIAZIDE [Concomitant]
     Indication: FLUID RETENTION
  9. LIPITOR [Concomitant]
     Indication: BLOOD CHOLESTEROL INCREASED
     Dosage: UNK, UNK
     Dates: end: 20070101
  10. ASPIRIN [Concomitant]
     Indication: ARTHRITIS
     Dosage: UNK, UNKNOWN
  11. HMG COA REDUCTASE INHIBITORS [Concomitant]
     Dates: start: 20070101

REACTIONS (13)
  - ARTHRALGIA [None]
  - ARTHRITIS [None]
  - BLOOD GLUCOSE DECREASED [None]
  - COLITIS ISCHAEMIC [None]
  - CONSTIPATION [None]
  - EARLY SATIETY [None]
  - HIGH DENSITY LIPOPROTEIN DECREASED [None]
  - INJECTION SITE PAIN [None]
  - JOINT SWELLING [None]
  - LOW DENSITY LIPOPROTEIN INCREASED [None]
  - RECTAL HAEMORRHAGE [None]
  - VOMITING [None]
  - WEIGHT DECREASED [None]
